FAERS Safety Report 22304829 (Version 2)
Quarter: 2023Q2

REPORT INFORMATION
  Report Type: Report from Study
  Country: US (occurrence: None)
  Receive Date: 20230510
  Receipt Date: 20230521
  Transmission Date: 20230722
  Serious: Yes (Other)
  Sender: FDA-Public Use
  Company Number: US-Merck Healthcare KGaA-9400780

PATIENT
  Age: 53 Year
  Sex: Male
  Weight: 136 kg

DRUGS (3)
  1. MAVENCLAD [Suspect]
     Active Substance: CLADRIBINE
     Indication: Multiple sclerosis
     Dosage: YEAR ONE THERAPY
     Route: 048
     Dates: start: 202304
  2. XARELTO [Suspect]
     Active Substance: RIVAROXABAN
     Indication: Embolism
     Route: 048
  3. ATORVASTATIN [Concomitant]
     Active Substance: ATORVASTATIN
     Indication: Blood cholesterol
     Route: 048

REACTIONS (2)
  - Haematochezia [Unknown]
  - Scleral discolouration [Unknown]
